FAERS Safety Report 5810773-9 (Version None)
Quarter: 2008Q3

REPORT INFORMATION
  Report Type: 
  Country: None (occurrence: None)
  Receive Date: 20080715
  Receipt Date: 20080704
  Transmission Date: 20090109
  Serious: Yes (Hospitalization)
  Sender: FDA-Public Use
  Company Number: CH-AMGEN-UK292148

PATIENT
  Age: 73 Year
  Sex: Female

DRUGS (6)
  1. MIMPARA [Suspect]
     Indication: HYPERPARATHYROIDISM SECONDARY
     Route: 048
     Dates: end: 20080117
  2. NEXIUM [Concomitant]
  3. IMUREK [Concomitant]
  4. ATACAND [Concomitant]
  5. NORVASC [Concomitant]
  6. BISOPROLOL FUMARATE [Concomitant]

REACTIONS (1)
  - GRAND MAL CONVULSION [None]
